FAERS Safety Report 25107829 (Version 1)
Quarter: 2025Q1

REPORT INFORMATION
  Report Type: Spontaneous
  Country: US (occurrence: US)
  Receive Date: 20250322
  Receipt Date: 20250322
  Transmission Date: 20250409
  Serious: No
  Sender: SANOFI AVENTIS
  Company Number: US-SA-2025SA081418

PATIENT
  Sex: Male
  Weight: 71.21 kg

DRUGS (1)
  1. DUPIXENT [Suspect]
     Active Substance: DUPILUMAB
     Indication: Nasal polyps
     Dosage: 300 MG, EVERY 2 WEEKS
     Route: 058

REACTIONS (2)
  - Accidental exposure to product [Unknown]
  - Exposure via eye contact [Unknown]
